FAERS Safety Report 6223386-4 (Version None)
Quarter: 2009Q2

REPORT INFORMATION
  Report Type: 
  Country: None (occurrence: None)
  Receive Date: 20090609
  Receipt Date: 20090528
  Transmission Date: 20091009
  Serious: Yes (Hospitalization)
  Sender: FDA-Public Use
  Company Number: 2009006340

PATIENT
  Age: 30 Year
  Sex: Male

DRUGS (1)
  1. TRISENOX [Suspect]
     Dosage: INJECTION
     Dates: start: 20090301, end: 20090401

REACTIONS (2)
  - CARDIOMEGALY [None]
  - ELECTROCARDIOGRAM QT PROLONGED [None]
